FAERS Safety Report 21772702 (Version 1)
Quarter: 2022Q4

REPORT INFORMATION
  Report Type: Spontaneous
  Country: CN (occurrence: CN)
  Receive Date: 20221223
  Receipt Date: 20221223
  Transmission Date: 20230112
  Serious: Yes (Hospitalization)
  Sender: FDA-Public Use
  Company Number: CN-SUNOVION-2022SMP015687

PATIENT
  Age: 13 Year
  Sex: Female
  Weight: 55 kg

DRUGS (5)
  1. LATUDA [Suspect]
     Active Substance: LURASIDONE HYDROCHLORIDE
     Indication: Affective disorder
     Dosage: 20 MG, QD
     Route: 048
     Dates: start: 202211
  2. LATUDA [Suspect]
     Active Substance: LURASIDONE HYDROCHLORIDE
     Dosage: 20 MG, BID
     Route: 048
     Dates: start: 20221129
  3. BLONANSERIN [Suspect]
     Active Substance: BLONANSERIN
     Indication: Emotional disorder of childhood
     Dosage: 4 MG, QD
     Route: 048
     Dates: start: 20221110, end: 20221113
  4. BLONANSERIN [Suspect]
     Active Substance: BLONANSERIN
     Dosage: 4 MG, BID
     Route: 048
     Dates: start: 20221114, end: 20221122
  5. ARIPIPRAZOLE [Concomitant]
     Active Substance: ARIPIPRAZOLE
     Indication: Neuropsychiatric symptoms
     Dosage: UNK
     Route: 048

REACTIONS (9)
  - Extrapyramidal disorder [Recovering/Resolving]
  - Decreased appetite [Recovering/Resolving]
  - Gastrointestinal disorder [Recovering/Resolving]
  - Palpitations [Recovering/Resolving]
  - Off label use [Unknown]
  - Product administered to patient of inappropriate age [Unknown]
  - Product use in unapproved indication [Unknown]
  - Prescribed underdose [Unknown]
  - Inappropriate schedule of product administration [Unknown]

NARRATIVE: CASE EVENT DATE: 20221110
